FAERS Safety Report 9679547 (Version 1)
Quarter: 2013Q4

REPORT INFORMATION
  Report Type: Spontaneous
  Country: US (occurrence: US)
  Receive Date: 20131109
  Receipt Date: 20131109
  Transmission Date: 20140711
  Serious: No
  Sender: FDA-Public Use
  Company Number: US-SANOFI-AVENTIS-2013SA089874

PATIENT
  Age: 54 Year
  Sex: Female
  Weight: 81.64 kg

DRUGS (2)
  1. ALLEGRA-D [Suspect]
     Indication: DIZZINESS
     Dosage: PRODUCT START DATE: 2 DAYS AGO.?DOSE:180/240
     Route: 048
  2. ALLEGRA-D, 12 HR [Suspect]
     Route: 048
     Dates: start: 2007

REACTIONS (4)
  - Euphoric mood [Recovered/Resolved]
  - Unevaluable event [Recovered/Resolved]
  - Feeling abnormal [Recovered/Resolved]
  - Nausea [Recovered/Resolved]
